FAERS Safety Report 6290079-7 (Version None)
Quarter: 2009Q3

REPORT INFORMATION
  Report Type: 
  Country: None (occurrence: None)
  Receive Date: 20090730
  Receipt Date: 20081113
  Transmission Date: 20100115
  Serious: No
  Sender: FDA-Public Use
  Company Number: US-BRISTOL-MYERS SQUIBB COMPANY-14405922

PATIENT
  Age: 67 Year
  Sex: Male
  Weight: 104 kg

DRUGS (11)
  1. COUMADIN [Suspect]
     Indication: ATRIAL FIBRILLATION
     Dates: start: 20081002
  2. NOVOLOG [Concomitant]
     Dosage: 100 IN AN INSULIN PUMP
     Route: 058
  3. NORVASC [Concomitant]
  4. LIPITOR [Concomitant]
  5. METOPROLOL TARTRATE [Concomitant]
  6. TIMOLOL MALEATE [Concomitant]
     Route: 047
  7. ASPIRIN [Concomitant]
  8. TRAVATAN [Concomitant]
     Route: 047
  9. NEXIUM [Concomitant]
  10. CHONDROITIN SULFATE + GLUCOSAMINE [Concomitant]
  11. VITAMINS + MINERALS [Concomitant]

REACTIONS (1)
  - RASH [None]
